FAERS Safety Report 10568817 (Version 4)
Quarter: 2015Q1

REPORT INFORMATION
  Report Type: Report from Study
  Country: US (occurrence: US)
  Receive Date: 20141106
  Receipt Date: 20150204
  Transmission Date: 20150720
  Serious: Yes (Death, Other)
  Sender: FDA-Public Use
  Company Number: US-SA-2014SA064213

PATIENT
  Age: 72 Year
  Sex: Female

DRUGS (2)
  1. KYNAMRO [Suspect]
     Active Substance: MIPOMERSEN SODIUM
     Indication: TYPE IIA HYPERLIPIDAEMIA
     Route: 058
     Dates: start: 20140522
  2. KYNAMRO [Suspect]
     Active Substance: MIPOMERSEN SODIUM
     Indication: TYPE IIA HYPERLIPIDAEMIA
     Route: 065

REACTIONS (11)
  - Mole excision [Unknown]
  - Fibula fracture [Not Recovered/Not Resolved]
  - Injection site erythema [Unknown]
  - Death [Fatal]
  - Drug dose omission [Unknown]
  - Fall [Not Recovered/Not Resolved]
  - Injection site discolouration [Unknown]
  - Injection site reaction [Recovered/Resolved]
  - Peripheral swelling [Unknown]
  - Injection site pain [Unknown]
  - Adverse drug reaction [Unknown]

NARRATIVE: CASE EVENT DATE: 201405
